FAERS Safety Report 10641221 (Version 1)
Quarter: 2014Q4

REPORT INFORMATION
  Report Type: Report from Study
  Country: US (occurrence: US)
  Receive Date: 20141209
  Receipt Date: 20141209
  Transmission Date: 20150529
  Serious: Yes (Death, Other)
  Sender: FDA-Public Use
  Company Number: US-GILEAD-2014-0125791

PATIENT
  Age: 23 Year
  Sex: Female

DRUGS (6)
  1. HYPERTONIC SALINE SOLUTION [Concomitant]
     Active Substance: SODIUM CHLORIDE
  2. CYPROHEPTADINE. [Concomitant]
     Active Substance: CYPROHEPTADINE
  3. COLISTIMETHATE [Concomitant]
     Active Substance: COLISTIMETHATE SODIUM
     Indication: CYSTIC FIBROSIS LUNG
     Dosage: UNK
     Dates: start: 20060209
  4. MAG-OX [Concomitant]
  5. AZTREONAM LYSINE [Suspect]
     Active Substance: AZTREONAM LYSINE
     Indication: CYSTIC FIBROSIS LUNG
     Dosage: 75 MG, TID
     Route: 055
     Dates: start: 20111213
  6. VORICONAZOLE. [Concomitant]
     Active Substance: VORICONAZOLE
     Indication: CYSTIC FIBROSIS LUNG
     Dosage: UNK
     Dates: start: 20131229

REACTIONS (1)
  - Death [Fatal]

NARRATIVE: CASE EVENT DATE: 20141113
